FAERS Safety Report 7575842-4 (Version None)
Quarter: 2011Q2

REPORT INFORMATION
  Report Type: 
  Country: None (occurrence: None)
  Receive Date: 20110628
  Receipt Date: 20110617
  Transmission Date: 20111010
  Serious: No
  Sender: FDA-Public Use
  Company Number: US-BIOGENIDEC-2011BI022515

PATIENT
  Age: 46 Year
  Sex: Female

DRUGS (1)
  1. TYSABRI [Suspect]
     Indication: MULTIPLE SCLEROSIS
     Route: 042
     Dates: start: 20110501

REACTIONS (5)
  - ERYTHEMA [None]
  - PRURITUS [None]
  - OEDEMA PERIPHERAL [None]
  - SWOLLEN TONGUE [None]
  - URTICARIA [None]
